FAERS Safety Report 9947472 (Version 3)
Quarter: 2015Q1

REPORT INFORMATION
  Report Type: Report from Study
  Country: PR (occurrence: PR)
  Receive Date: 20140303
  Receipt Date: 20150217
  Transmission Date: 20150721
  Serious: No
  Sender: FDA-Public Use
  Company Number: PR-ABBVIE-12P-131-0910394-00

PATIENT
  Sex: Female
  Weight: 62.65 kg

DRUGS (9)
  1. HUMIRA [Suspect]
     Active Substance: ADALIMUMAB
     Route: 058
     Dates: start: 20130131
  2. GABAPENTIN. [Concomitant]
     Active Substance: GABAPENTIN
     Indication: PRODUCT USED FOR UNKNOWN INDICATION
     Route: 048
  3. ADVIL [Concomitant]
     Active Substance: IBUPROFEN
     Indication: PRODUCT USED FOR UNKNOWN INDICATION
     Route: 048
  4. PATCH [Concomitant]
     Active Substance: MENTHOL
     Indication: BACK PAIN
     Route: 061
  5. DICLOFENAC POTASSIUM. [Concomitant]
     Active Substance: DICLOFENAC POTASSIUM
     Indication: PAIN
     Route: 048
  6. UNKNOWN MEDICATION ANTI-INFLAMMATORY [Concomitant]
     Indication: MUSCLE SPASMS
     Route: 048
  7. HUMIRA [Suspect]
     Active Substance: ADALIMUMAB
     Indication: RHEUMATOID ARTHRITIS
     Route: 058
     Dates: start: 2011
  8. NORFLEX [Concomitant]
     Active Substance: ORPHENADRINE CITRATE
     Indication: BACK PAIN
     Route: 048
  9. DICLOFENAC POTASSIUM. [Concomitant]
     Active Substance: DICLOFENAC POTASSIUM
     Indication: RHEUMATOID ARTHRITIS

REACTIONS (1)
  - Constipation [Recovered/Resolved]

NARRATIVE: CASE EVENT DATE: 2012
